FAERS Safety Report 14057856 (Version 2)
Quarter: 2017Q4

REPORT INFORMATION
  Report Type: Report from Study
  Country: BR (occurrence: BR)
  Receive Date: 20171006
  Receipt Date: 20171107
  Transmission Date: 20180321
  Serious: Yes (Other)
  Sender: FDA-Public Use
  Company Number: PHHY2017BR146053

PATIENT
  Sex: Female
  Weight: 61.5 kg

DRUGS (2)
  1. DIOVAN [Suspect]
     Active Substance: VALSARTAN
     Indication: HYPERTENSION
     Dosage: 160 MG, QD
     Route: 048
  2. DIOVAN [Suspect]
     Active Substance: VALSARTAN
     Dosage: 80 MG, UNK
     Route: 048

REACTIONS (7)
  - Abdominal distension [Unknown]
  - Joint dislocation [Recovering/Resolving]
  - Hypotension [Recovered/Resolved]
  - Weight increased [Recovering/Resolving]
  - Meniscus injury [Recovering/Resolving]
  - Joint swelling [Unknown]
  - Glaucoma [Unknown]
